FAERS Safety Report 11528196 (Version 1)
Quarter: 2015Q3

REPORT INFORMATION
  Report Type: Spontaneous
  Country: US (occurrence: US)
  Receive Date: 20150921
  Receipt Date: 20150921
  Transmission Date: 20151125
  Serious: No
  Sender: FDA-Public Use
  Company Number: US-ASTRAZENECA-2015SE87374

PATIENT
  Age: 23817 Day
  Sex: Female
  Weight: 74.8 kg

DRUGS (1)
  1. SYMBICORT [Suspect]
     Active Substance: BUDESONIDE\FORMOTEROL FUMARATE DIHYDRATE
     Indication: CHRONIC OBSTRUCTIVE PULMONARY DISEASE
     Dosage: 160-4.5 MCG TWO PUFFS BID
     Route: 055
     Dates: start: 20150905

REACTIONS (3)
  - Dizziness [Not Recovered/Not Resolved]
  - Lung disorder [Not Recovered/Not Resolved]
  - Dysphonia [Not Recovered/Not Resolved]

NARRATIVE: CASE EVENT DATE: 20150908
